FAERS Safety Report 9548562 (Version 2)
Quarter: 2013Q4

REPORT INFORMATION
  Report Type: Spontaneous
  Country: US (occurrence: US)
  Receive Date: 20130924
  Receipt Date: 20131111
  Transmission Date: 20140711
  Serious: Yes (Other)
  Sender: FDA-Public Use
  Company Number: US-PFIZER INC-2013271502

PATIENT
  Age: 54 Year
  Sex: Female
  Weight: 78.46 kg

DRUGS (7)
  1. SUTENT [Suspect]
     Indication: SOFT TISSUE CANCER
     Dosage: 37.5 MG (12.5 MG + 25 MG), DAILY, NO BREAKS
     Route: 048
     Dates: start: 20130817
  2. VENLAFAXINE HYDROCHLORIDE [Concomitant]
     Dosage: 100 MG, UNK
  3. WARFARIN [Concomitant]
     Dosage: 2.5 MG, UNK
  4. TOPIRAMATE [Concomitant]
     Dosage: 25 MG, UNK
  5. ENOXAPARIN [Concomitant]
     Dosage: 80 MG, UNK
  6. FISH OIL [Concomitant]
     Dosage: UNK
  7. LOVENOX [Concomitant]

REACTIONS (6)
  - Glossodynia [Unknown]
  - Stomatitis [Unknown]
  - Dyspepsia [Unknown]
  - Pain in extremity [Unknown]
  - Alopecia [Unknown]
  - Off label use [Unknown]
